FAERS Safety Report 5305609-9 (Version None)
Quarter: 2007Q2

REPORT INFORMATION
  Report Type: 
  Country: None (occurrence: None)
  Receive Date: 20070419
  Receipt Date: 20070419
  Transmission Date: 20071010
  Serious: Yes (Other)
  Sender: FDA-Public Use
  Company Number: None

PATIENT
  Sex: Female
  Weight: 62.5964 kg

DRUGS (2)
  1. ZELNORM [Suspect]
     Indication: DYSPEPSIA
     Dosage: ONE PILL   TWICE DAILY
     Dates: start: 20040401, end: 20070401
  2. ZELNORM [Suspect]
     Indication: IRRITABLE BOWEL SYNDROME
     Dosage: ONE PILL   TWICE DAILY
     Dates: start: 20040401, end: 20070401

REACTIONS (1)
  - GENERAL PHYSICAL HEALTH DETERIORATION [None]
